FAERS Safety Report 7599308-0 (Version None)
Quarter: 2011Q3

REPORT INFORMATION
  Report Type: 
  Country: None (occurrence: None)
  Receive Date: 20110711
  Receipt Date: 20110627
  Transmission Date: 20111222
  Serious: Yes (Other)
  Sender: FDA-Public Use
  Company Number: US-BAYER-2010-002109

PATIENT
  Sex: Male

DRUGS (16)
  1. TRASYLOL [Suspect]
     Indication: AORTIC VALVE REPLACEMENT
  2. TOPROL-XL [Concomitant]
     Dosage: 100 MG, UNK
     Route: 048
     Dates: start: 20020101
  3. ALLOPURINOL [Concomitant]
  4. TRASYLOL [Suspect]
     Indication: CORONARY ARTERY BYPASS
     Dosage: UNK
     Route: 042
     Dates: start: 20061128
  5. TRASYLOL [Suspect]
     Indication: VENTRICULAR SEPTAL DEFECT REPAIR
  6. GLYBURIDE [Concomitant]
  7. CARVEDILOL [Concomitant]
  8. TRASYLOL [Suspect]
     Indication: CARDIAC NEOPLASM UNSPECIFIED
     Dosage: UNK
     Route: 042
     Dates: start: 20020102
  9. PLAVIX [Concomitant]
     Dosage: 75 MG, UNK
     Route: 048
     Dates: start: 20020101
  10. LEVAQUIN [Concomitant]
     Dosage: 750 MG, QD, 7 DAYS
     Route: 048
     Dates: start: 20060925
  11. LEVOTHYROXINE SODIUM [Concomitant]
  12. ACETYLSALICYLIC ACID SRT [Concomitant]
  13. LASIX [Concomitant]
  14. LISINOPRIL [Concomitant]
     Dosage: 20 MG, UNK
     Route: 048
     Dates: start: 20030909, end: 20040101
  15. FUROSEMIDE [Concomitant]
     Dosage: 40 MG, UNK
     Route: 048
     Dates: start: 20020101, end: 20040101
  16. TRASYLOL [Suspect]

REACTIONS (8)
  - FEAR [None]
  - INJURY [None]
  - EMOTIONAL DISTRESS [None]
  - UNEVALUABLE EVENT [None]
  - PAIN [None]
  - ANXIETY [None]
  - RENAL FAILURE [None]
  - STRESS [None]
